FAERS Safety Report 9546923 (Version 1)
Quarter: 2013Q2

REPORT INFORMATION
  Report Type: Spontaneous
  Country: US (occurrence: None)
  Receive Date: 20130524
  Receipt Date: 20130524
  Transmission Date: 20140414
  Serious: No
  Sender: FDA-Public Use
  Company Number: PHEH2012US024599

PATIENT
  Sex: 0

DRUGS (2)
  1. GILENYA (FINGOLIMOD) CAPSULE [Suspect]
     Indication: MULTIPLE SCLEROSIS
     Dosage: 1 DF . UNK, ORAL
  2. EXTAVIA [Suspect]
     Indication: MULTIPLE SCLEROSIS

REACTIONS (2)
  - Multiple sclerosis relapse [None]
  - Multiple sclerosis [None]
